FAERS Safety Report 8307626-3 (Version None)
Quarter: 2012Q2

REPORT INFORMATION
  Report Type: 
  Country: None (occurrence: None)
  Receive Date: 20120424
  Receipt Date: 20120417
  Transmission Date: 20120825
  Serious: Yes (Death)
  Sender: FDA-Public Use
  Company Number: JP-PFIZER INC-2012081763

PATIENT
  Age: 85 Year
  Sex: Female

DRUGS (11)
  1. BISOPROLOL FUMARATE [Concomitant]
  2. LASIX [Concomitant]
  3. HEPARINOID [Concomitant]
  4. HIRUDOID [Concomitant]
  5. ALDACTONE [Concomitant]
  6. URSO 250 [Concomitant]
  7. CEFOBID [Suspect]
     Indication: BRONCHITIS
     Dosage: 1 G, 1X/DAY
     Route: 041
     Dates: start: 20120111, end: 20120111
  8. ADALAT CC [Concomitant]
  9. LIVACT [Concomitant]
  10. MYSER [Concomitant]
     Dosage: UNK
  11. ZOLPIDEM [Concomitant]

REACTIONS (1)
  - ANAPHYLACTIC SHOCK [None]
